FAERS Safety Report 6936627-2 (Version None)
Quarter: 2010Q3

REPORT INFORMATION
  Report Type: 
  Country: None (occurrence: None)
  Receive Date: 20100823
  Receipt Date: 20100817
  Transmission Date: 20110219
  Serious: Yes (Hospitalization)
  Sender: FDA-Public Use
  Company Number: GB-ROCHE-721341

PATIENT
  Age: 83 Year
  Sex: Female
  Weight: 45 kg

DRUGS (6)
  1. TAMIFLU [Suspect]
     Indication: PRODUCT USED FOR UNKNOWN INDICATION
     Route: 065
  2. BISOPROLOL [Concomitant]
     Route: 048
     Dates: start: 20090501
  3. LANSOPRAZOLE [Concomitant]
     Indication: HIATUS HERNIA
     Route: 048
     Dates: start: 20030101
  4. RAMIPRIL [Concomitant]
     Indication: HYPERTENSION
     Dates: start: 20080201
  5. TRAMADOL [Concomitant]
     Indication: ARTHRITIS
     Route: 048
     Dates: start: 20030101
  6. ZOPICLONE [Concomitant]
     Indication: INSOMNIA
     Route: 048
     Dates: start: 20040101

REACTIONS (2)
  - DECREASED APPETITE [None]
  - NAUSEA [None]
